FAERS Safety Report 11384658 (Version 1)
Quarter: 2015Q3

REPORT INFORMATION
  Report Type: Spontaneous
  Country: US (occurrence: US)
  Receive Date: 20150811
  Receipt Date: 20150811
  Transmission Date: 20151125
  Serious: No
  Sender: FDA-Public Use
  Company Number: US-ELI_LILLY_AND_COMPANY-US201105008844

PATIENT
  Age: 71 Year
  Sex: Male
  Weight: 82.54 kg

DRUGS (19)
  1. DHEA [Concomitant]
     Active Substance: PRASTERONE
     Indication: ROUTINE HEALTH MAINTENANCE
     Dosage: 50 MG, QD
  2. CIALIS [Suspect]
     Active Substance: TADALAFIL
     Dosage: UNK, PRN
  3. ZINC [Concomitant]
     Active Substance: ZINC\ZINC CHLORIDE
     Indication: ROUTINE HEALTH MAINTENANCE
     Dosage: 50 MG, QD
  4. CIALIS [Suspect]
     Active Substance: TADALAFIL
     Indication: ERECTILE DYSFUNCTION
     Dosage: 5 MG, QD
     Dates: start: 20110506, end: 20110516
  5. GLA [Concomitant]
     Indication: ROUTINE HEALTH MAINTENANCE
     Dosage: 240 MG, BID
  6. LISINOPRIL. [Concomitant]
     Active Substance: LISINOPRIL
     Indication: HYPERTENSION
     Dosage: 20 MG, QD
  7. SIMVASTATIN. [Concomitant]
     Active Substance: SIMVASTATIN
     Indication: HYPERLIPIDAEMIA
     Dosage: 40 MG, QD
  8. GLUCOSAMINE [Concomitant]
     Active Substance: GLUCOSAMINE
     Dosage: 500 MG, QD
  9. MSM [Concomitant]
     Active Substance: DIMETHYL SULFONE
     Indication: OSTEOARTHRITIS
     Dosage: 1000 MG, BID
  10. FIBERCON [Concomitant]
     Active Substance: CALCIUM POLYCARBOPHIL
     Indication: HYPERLIPIDAEMIA
     Dosage: 1 G, BID
  11. MULTIVITAMIN [Concomitant]
     Active Substance: VITAMINS
     Indication: ROUTINE HEALTH MAINTENANCE
     Dosage: UNK, QD
  12. DOCUSATE SODIUM. [Concomitant]
     Active Substance: DOCUSATE SODIUM
     Indication: ABNORMAL FAECES
     Dosage: 100 MG, BID
  13. MAXZIDE [Concomitant]
     Active Substance: HYDROCHLOROTHIAZIDE\TRIAMTERENE
     Indication: HYPERTENSION
     Dosage: 25 MG, QD
  14. VITAMIN C [Concomitant]
     Active Substance: ASCORBIC ACID
     Indication: ROUTINE HEALTH MAINTENANCE
     Dosage: 1000 MG, QD
  15. VITAMIN D3 [Concomitant]
     Active Substance: CHOLECALCIFEROL
     Indication: ROUTINE HEALTH MAINTENANCE
     Dosage: 2000 IU, BID
  16. GLUCOSAMINE [Concomitant]
     Active Substance: GLUCOSAMINE
     Indication: OSTEOARTHRITIS
     Dosage: 1000 MG, QD
  17. FISH OIL [Concomitant]
     Active Substance: FISH OIL
     Indication: EYE DISORDER
     Dosage: 1000 MG, BID
  18. TESTOSTERONE. [Concomitant]
     Active Substance: TESTOSTERONE
     Indication: ERECTILE DYSFUNCTION
     Dosage: 75 MG, UNK
     Route: 061
  19. CIALIS [Suspect]
     Active Substance: TADALAFIL
     Dosage: UNK
     Dates: start: 20110530, end: 20110530

REACTIONS (3)
  - Musculoskeletal pain [Not Recovered/Not Resolved]
  - Insomnia [Recovered/Resolved]
  - Myalgia [Not Recovered/Not Resolved]

NARRATIVE: CASE EVENT DATE: 20110517
